FAERS Safety Report 6656163-0 (Version None)
Quarter: 2010Q1

REPORT INFORMATION
  Report Type: 
  Country: None (occurrence: None)
  Receive Date: 20100329
  Receipt Date: 20100325
  Transmission Date: 20100710
  Serious: Yes (Death)
  Sender: FDA-Public Use
  Company Number: PHHY2010JP01914

PATIENT
  Age: 75 Year
  Sex: Female

DRUGS (8)
  1. RASILEZ [Suspect]
     Indication: HYPERTENSION
     Dosage: 150 MG, QD
     Route: 048
     Dates: start: 20091125
  2. CANDESARTAN CILEXETIL [Concomitant]
     Dosage: 8 MG, UNK
     Route: 048
  3. NATRIX [Concomitant]
     Dosage: 0.5 MG, UNK
     Route: 048
     Dates: start: 20091120
  4. ATELEC [Concomitant]
     Dosage: 20 MG, UNK
     Route: 048
  5. EPLERENONE [Concomitant]
     Dosage: 50 MG, UNK
     Route: 048
     Dates: start: 20091111
  6. PAXIL [Concomitant]
     Dosage: 10 MG, UNK
     Route: 048
  7. LANSOPRAZOLE [Concomitant]
     Dosage: 15 MG, UNK
     Route: 048
  8. DEPAKENE [Concomitant]
     Dosage: 800 MG, UNK
     Route: 048
     Dates: start: 20091110

REACTIONS (4)
  - CARDIOVERSION [None]
  - LOSS OF CONSCIOUSNESS [None]
  - RESUSCITATION [None]
  - VENTRICULAR FIBRILLATION [None]
